FAERS Safety Report 20318705 (Version 1)
Quarter: 2022Q1

REPORT INFORMATION
  Report Type: Spontaneous
  Country: CN (occurrence: CN)
  Receive Date: 20220110
  Receipt Date: 20220110
  Transmission Date: 20220424
  Serious: Yes (Hospitalization)
  Sender: FDA-Public Use
  Company Number: CN-ELI_LILLY_AND_COMPANY-CN202201001621

PATIENT
  Age: 55 Year
  Sex: Male
  Weight: 60.5 kg

DRUGS (3)
  1. HUMALOG [Suspect]
     Active Substance: INSULIN LISPRO
     Indication: Diabetes mellitus
     Dosage: 16 U, DAILY (MIDDAY)
     Route: 058
     Dates: start: 201310
  2. HUMALOG [Suspect]
     Active Substance: INSULIN LISPRO
     Dosage: 12 U, DAILY (AT NIGHT)
     Route: 058
     Dates: start: 201310
  3. HUMALOG [Suspect]
     Active Substance: INSULIN LISPRO
     Dosage: 8 U, BID (MIDDAY 8 UNITS AND NIGHT 8 UNITS)
     Route: 058

REACTIONS (2)
  - Diabetes mellitus inadequate control [Unknown]
  - Visual impairment [Unknown]
